FAERS Safety Report 11989893 (Version 3)
Quarter: 2016Q2

REPORT INFORMATION
  Report Type: Report from Study
  Country: ES (occurrence: ES)
  Receive Date: 20160202
  Receipt Date: 20160524
  Transmission Date: 20160815
  Serious: Yes (Death, Hospitalization, Other)
  Sender: FDA-Public Use
  Company Number: ES-ABBVIE-16P-144-1548051-00

PATIENT
  Age: 63 Year
  Sex: Female

DRUGS (5)
  1. SINEMET [Concomitant]
     Active Substance: CARBIDOPA\LEVODOPA
     Indication: PARKINSON^S DISEASE
     Dosage: 250/50 MG
     Route: 048
     Dates: end: 201601
  2. DUODOPA [Suspect]
     Active Substance: CARBIDOPA\LEVODOPA
     Indication: PARKINSON^S DISEASE
     Dosage: SEE NARRATIVE
     Route: 050
     Dates: start: 201004
  3. DUODOPA [Suspect]
     Active Substance: CARBIDOPA\LEVODOPA
     Dosage: 1600 MG DAILY
     Route: 050
     Dates: start: 201004, end: 20160511
  4. SINEMET [Concomitant]
     Active Substance: CARBIDOPA\LEVODOPA
     Route: 050
     Dates: start: 201601
  5. DUODOPA [Suspect]
     Active Substance: CARBIDOPA\LEVODOPA
     Dosage: SEE NARRATIVE
     Route: 050

REACTIONS (10)
  - Gastrooesophageal reflux disease [Not Recovered/Not Resolved]
  - Depressed level of consciousness [Unknown]
  - Musculoskeletal stiffness [Not Recovered/Not Resolved]
  - Akinesia [Recovered/Resolved]
  - Somnolence [Unknown]
  - Acute myocardial infarction [Recovered/Resolved]
  - Acute myocardial infarction [Fatal]
  - Urinary tract infection [Recovered/Resolved]
  - Device occlusion [Unknown]
  - Asthenia [Not Recovered/Not Resolved]

NARRATIVE: CASE EVENT DATE: 201601
